FAERS Safety Report 7967942-1 (Version None)
Quarter: 2011Q4

REPORT INFORMATION
  Report Type: 
  Country: None (occurrence: None)
  Receive Date: 20111209
  Receipt Date: 20111124
  Transmission Date: 20120403
  Serious: Yes (Other)
  Sender: FDA-Public Use
  Company Number: JP-ROCHE-763498

PATIENT
  Sex: Male
  Weight: 61 kg

DRUGS (2)
  1. TAMIFLU [Suspect]
     Indication: INFLUENZA
     Route: 048
     Dates: start: 20110208, end: 20110212
  2. TAMIFLU [Suspect]
     Route: 048
     Dates: start: 20110212, end: 20110212

REACTIONS (1)
  - LUNG DISORDER [None]
